FAERS Safety Report 8011609-0 (Version None)
Quarter: 2011Q4

REPORT INFORMATION
  Report Type: 
  Country: None (occurrence: None)
  Receive Date: 20111123
  Receipt Date: 20110727
  Transmission Date: 20120403
  Serious: No
  Sender: FDA-Public Use
  Company Number: 332974

PATIENT
  Sex: Male

DRUGS (1)
  1. VICTOZA [Suspect]
     Indication: PRODUCT USED FOR UNKNOWN INDICATION
     Dosage: 0.6 MG.QD, SUBCUTANEOUS, 1.2 MG, QD, SUBCUTANEOUS
     Route: 058

REACTIONS (4)
  - BACK PAIN [None]
  - DEPRESSED MOOD [None]
  - SOMNOLENCE [None]
  - HEADACHE [None]
